FAERS Safety Report 9057821 (Version 1)
Quarter: 2013Q1

REPORT INFORMATION
  Report Type: Spontaneous
  Country: US (occurrence: None)
  Receive Date: 20130204
  Receipt Date: 20130204
  Transmission Date: 20140127
  Serious: Yes (Life-Threatening, Other)
  Sender: FDA-Public Use
  Company Number: None

PATIENT
  Age: 45 Day
  Sex: Male
  Weight: 2.95 kg

DRUGS (2)
  1. ZIDOVUDINE [Suspect]
     Indication: HIV ANTIBODY POSITIVE
     Route: 048
     Dates: start: 20121220, end: 20130201
  2. KALETRA [Suspect]
     Indication: HIV ANTIBODY POSITIVE
     Route: 048
     Dates: start: 20130102, end: 20130201

REACTIONS (1)
  - Haemoglobin decreased [None]
